FAERS Safety Report 6043804-4 (Version None)
Quarter: 2009Q1

REPORT INFORMATION
  Report Type: 
  Country: None (occurrence: None)
  Receive Date: 20090120
  Receipt Date: 20090116
  Transmission Date: 20090719
  Serious: Yes (Death)
  Sender: FDA-Public Use
  Company Number: PHEH2009US00841

PATIENT
  Sex: Male

DRUGS (1)
  1. ELIDEL [Suspect]
     Route: 061

REACTIONS (7)
  - ACUTE LYMPHOCYTIC LEUKAEMIA [None]
  - ANXIETY [None]
  - INJURY [None]
  - MALAISE [None]
  - PAIN [None]
  - QUALITY OF LIFE DECREASED [None]
  - SEPTIC SHOCK [None]
